FAERS Safety Report 7132924-9 (Version None)
Quarter: 2010Q4

REPORT INFORMATION
  Report Type: 
  Country: None (occurrence: None)
  Receive Date: 20101202
  Receipt Date: 20101118
  Transmission Date: 20110411
  Serious: No
  Sender: FDA-Public Use
  Company Number: US-PFIZER INC-US-WYE-H18417310

PATIENT
  Sex: Male
  Weight: 72.562 kg

DRUGS (1)
  1. PRISTIQ [Suspect]
     Indication: DEPRESSION
     Dosage: 50 MG 2X DAY
     Dates: start: 20101018

REACTIONS (2)
  - HEADACHE [None]
  - MYDRIASIS [None]
